FAERS Safety Report 6364771-X (Version None)
Quarter: 2009Q3

REPORT INFORMATION
  Report Type: 
  Country: None (occurrence: None)
  Receive Date: 20090919
  Receipt Date: 20090729
  Transmission Date: 20100115
  Serious: No
  Sender: FDA-Public Use
  Company Number: US-ABBOTT-09P-163-0588563-00

PATIENT
  Sex: Female
  Weight: 39.498 kg

DRUGS (11)
  1. HUMIRA [Suspect]
     Indication: RHEUMATOID ARTHRITIS
     Dates: start: 20090501
  2. GABAPENTIN [Concomitant]
     Indication: FIBROMYALGIA
     Dosage: 300MG; 1 PILL 2X/DAY
  3. KLONOZAPIN [Concomitant]
     Indication: ANXIETY
     Dosage: 1MG 1PILL ONCE OR TWICE
  4. PROTONIX [Concomitant]
     Indication: PROPHYLAXIS AGAINST GASTROINTESTINAL ULCER
  5. DARVOCET [Concomitant]
     Indication: PAIN
     Dosage: 100/650 MG
  6. LEXAPRO [Concomitant]
     Indication: DEPRESSION
  7. VOLTAREN [Concomitant]
     Indication: PAIN
     Dosage: 1% GEL
  8. MULTI-VITAMIN [Concomitant]
     Indication: VITAMIN SUPPLEMENTATION
  9. CALCIUM 600 + D [Concomitant]
     Indication: VITAMIN SUPPLEMENTATION
  10. VITAMIN B-12 [Concomitant]
     Indication: VITAMIN SUPPLEMENTATION
  11. HYDROCORTISONE [Concomitant]
     Indication: OPEN WOUND

REACTIONS (6)
  - BLOOD GLUCOSE DECREASED [None]
  - FATIGUE [None]
  - INJECTION SITE PAIN [None]
  - PAIN IN EXTREMITY [None]
  - POOR QUALITY DRUG ADMINISTERED [None]
  - URINARY TRACT INFECTION [None]
